FAERS Safety Report 10557799 (Version 2)
Quarter: 2014Q4

REPORT INFORMATION
  Report Type: Spontaneous
  Country: FR (occurrence: FR)
  Receive Date: 20141031
  Receipt Date: 20141103
  Transmission Date: 20150529
  Serious: Yes (Hospitalization)
  Sender: FDA-Public Use
  Company Number: FR-PFIZER INC-2014299045

PATIENT
  Age: 70 Year
  Sex: Female

DRUGS (8)
  1. XANAX [Suspect]
     Active Substance: ALPRAZOLAM
     Dosage: 6 MG UP TO 12 MG PER DAY
     Route: 048
  2. XANAX [Suspect]
     Active Substance: ALPRAZOLAM
     Dosage: 1.5 MG, DAILY
     Route: 048
  3. LOVENOX [Concomitant]
     Active Substance: ENOXAPARIN SODIUM
     Dosage: 4000 IU, DAILY
     Route: 058
  4. XANAX [Suspect]
     Active Substance: ALPRAZOLAM
     Dosage: 3 MG, DAILY
     Route: 048
  5. RISPERDAL [Suspect]
     Active Substance: RISPERIDONE
     Dosage: 6 MG UP TO 12 MG PER DAY
     Route: 048
     Dates: end: 20140502
  6. LOXEN [Concomitant]
     Active Substance: NICARDIPINE HYDROCHLORIDE
     Dosage: 20 MG, DAILY
     Route: 048
  7. VOGALENE [Suspect]
     Active Substance: METOPIMAZINE
     Indication: GASTROENTERITIS
     Dosage: UNK
     Route: 048
     Dates: start: 201404, end: 20140502
  8. NOCTAMIDE [Concomitant]
     Active Substance: LORMETAZEPAM
     Dosage: 1 DF, DAILY
     Route: 048

REACTIONS (1)
  - Extrapyramidal disorder [Recovered/Resolved]

NARRATIVE: CASE EVENT DATE: 2014
